FAERS Safety Report 4738134-4 (Version None)
Quarter: 2005Q3

REPORT INFORMATION
  Report Type: 
  Country: None (occurrence: None)
  Receive Date: 20050809
  Receipt Date: 20050804
  Transmission Date: 20060218
  Serious: Yes (Hospitalization, Disabling, Other)
  Sender: FDA-Public Use
  Company Number: GB-MERCK-0508GBR00040

PATIENT
  Age: 73 Year
  Sex: Male

DRUGS (5)
  1. DECADRON [Suspect]
     Indication: CHRONIC MYELOID LEUKAEMIA
     Route: 048
     Dates: end: 20050724
  2. ACETAMINOPHEN [Concomitant]
     Indication: PAIN
     Route: 065
  3. CODEINE [Concomitant]
     Indication: PAIN
     Route: 065
  4. QUININE SULFATE [Concomitant]
     Indication: MUSCLE SPASMS
     Route: 065
  5. IMATINIB MESYLATE [Concomitant]
     Indication: CHRONIC MYELOID LEUKAEMIA
     Route: 065

REACTIONS (3)
  - DIFFICULTY IN WALKING [None]
  - DYSSTASIA [None]
  - PAIN IN EXTREMITY [None]
